FAERS Safety Report 9851135 (Version 1)
Quarter: 2014Q1

REPORT INFORMATION
  Report Type: Spontaneous
  Country: GB (occurrence: GB)
  Receive Date: 20140128
  Receipt Date: 20140128
  Transmission Date: 20141002
  Serious: Yes (Other)
  Sender: FDA-Public Use
  Company Number: GB-WATSON-2014-00817

PATIENT
  Sex: Female

DRUGS (1)
  1. LOSARTAN-HYDROCHLOROTHIAZIDE (UNKNOWN) [Suspect]
     Indication: HYPERTENSION
     Dosage: 1 DF, DAILY; DOSAGE TEXT: 100/2.5
     Route: 048
     Dates: start: 20131201, end: 20131220

REACTIONS (3)
  - Syncope [Recovering/Resolving]
  - Confusional state [Recovering/Resolving]
  - Heart rate increased [Recovering/Resolving]
